FAERS Safety Report 8390667-8 (Version None)
Quarter: 2012Q2

REPORT INFORMATION
  Report Type: 
  Country: None (occurrence: None)
  Receive Date: 20120529
  Receipt Date: 20120517
  Transmission Date: 20120825
  Serious: Yes (Hospitalization)
  Sender: FDA-Public Use
  Company Number: US-BRISTOL-MYERS SQUIBB COMPANY-16600868

PATIENT
  Sex: Male

DRUGS (1)
  1. YERVOY [Suspect]

REACTIONS (5)
  - BLOOD CORTISOL DECREASED [None]
  - DECREASED APPETITE [None]
  - THYROID FUNCTION TEST ABNORMAL [None]
  - FATIGUE [None]
  - EOSINOPHIL COUNT INCREASED [None]
